FAERS Safety Report 6603413-2 (Version None)
Quarter: 2010Q1

REPORT INFORMATION
  Report Type: 
  Country: None (occurrence: None)
  Receive Date: 20100226
  Receipt Date: 20090501
  Transmission Date: 20100710
  Serious: No
  Sender: FDA-Public Use
  Company Number: A0781652A

PATIENT
  Age: 28 Year
  Sex: Female

DRUGS (2)
  1. VALTREX [Suspect]
     Indication: GENITAL HERPES
     Dosage: 1G TWICE PER DAY
     Route: 048
     Dates: start: 20090422, end: 20090430
  2. ZOLOFT [Concomitant]

REACTIONS (5)
  - BACK PAIN [None]
  - DYSURIA [None]
  - SENSATION OF HEAVINESS [None]
  - VAGINAL SWELLING [None]
  - VULVOVAGINAL DISCOMFORT [None]
